FAERS Safety Report 8789591 (Version 1)
Quarter: 2012Q4

REPORT INFORMATION
  Report Type: Spontaneous
  Country: DK (occurrence: None)
  Receive Date: 20120906
  Receipt Date: 20120906
  Transmission Date: 20130627
  Serious: Yes (Other)
  Sender: FDA-Public Use
  Company Number: 2012MA010578

PATIENT
  Age: 44 Year
  Sex: Female

DRUGS (11)
  1. METFORMIN HYDROCHLORIDE [Suspect]
     Dates: start: 20120509
  2. CITALOPRAM [Concomitant]
  3. VENTOLIN [Concomitant]
  4. RAMIPRIL [Concomitant]
  5. DOXAZOSIN [Concomitant]
  6. AMLOSTIN [Concomitant]
  7. BENDROFLUMETHIAZIDE [Concomitant]
  8. SIMVASTATIN [Concomitant]
  9. CO-CODAMOL [Concomitant]
  10. BUDESONIDE [Concomitant]
  11. ATORVASTATIN [Concomitant]

REACTIONS (1)
  - Asthma [None]
